FAERS Safety Report 6274376-7 (Version None)
Quarter: 2009Q4

REPORT INFORMATION
  Report Type: 
  Country: None (occurrence: None)
  Receive Date: 20090716
  Receipt Date: 20090708
  Transmission Date: 20100525
  Serious: Yes (Hospitalization)
  Sender: FDA-Public Use
  Company Number: A0796553A

PATIENT
  Age: 77 Year
  Sex: Female

DRUGS (2)
  1. BEANO  (ALPHA-D-GALACTOSIDASE) [Suspect]
     Indication: FLATULENCE
  2. CALCIUM CARBONATE [Suspect]
     Indication: FLATULENCE

REACTIONS (9)
  - BLOOD SODIUM INCREASED [None]
  - ERUCTATION [None]
  - HEADACHE [None]
  - MEMORY IMPAIRMENT [None]
  - NAUSEA [None]
  - NEUROPATHY PERIPHERAL [None]
  - POOR QUALITY SLEEP [None]
  - THINKING ABNORMAL [None]
  - VOMITING [None]
